FAERS Safety Report 9935992 (Version 1)
Quarter: 2014Q1

REPORT INFORMATION
  Report Type: Spontaneous
  Country: US (occurrence: US)
  Receive Date: 20140228
  Receipt Date: 20140228
  Transmission Date: 20141002
  Serious: No
  Sender: FDA-Public Use
  Company Number: US-GILEAD-2012-0065810

PATIENT
  Age: 50 Year
  Sex: Male

DRUGS (2)
  1. STRIBILD [Suspect]
     Indication: HIV INFECTION
     Dosage: UNK
     Dates: start: 201210
  2. FLONASE [Concomitant]

REACTIONS (4)
  - Pilonidal cyst [Unknown]
  - Dry skin [Recovered/Resolved]
  - Drug dose omission [Recovered/Resolved]
  - Abdominal discomfort [Recovered/Resolved]
